FAERS Safety Report 12777891 (Version 1)
Quarter: 2016Q3

REPORT INFORMATION
  Report Type: Spontaneous
  Country: US (occurrence: US)
  Receive Date: 20160924
  Receipt Date: 20160924
  Transmission Date: 20161109
  Serious: No
  Sender: FDA-Public Use
  Company Number: US-JAZZ-2016-US-010829

PATIENT
  Age: 91 Year
  Sex: Female

DRUGS (29)
  1. XYREM [Suspect]
     Active Substance: SODIUM OXYBATE
     Indication: CATAPLEXY
     Dosage: DOSE ADJUSTMENTS
     Route: 048
     Dates: start: 200402, end: 201308
  2. XYREM [Suspect]
     Active Substance: SODIUM OXYBATE
     Dosage: 2.75 G, BID
     Route: 048
     Dates: start: 201308
  3. PROTONIX DR [Concomitant]
  4. PERCOCET [Concomitant]
     Active Substance: ACETAMINOPHEN\OXYCODONE HYDROCHLORIDE
  5. TRAMADOL ER [Concomitant]
     Active Substance: TRAMADOL HYDROCHLORIDE
  6. NORCO [Concomitant]
     Active Substance: ACETAMINOPHEN\HYDROCODONE BITARTRATE
  7. ULTRAM ER [Concomitant]
     Active Substance: TRAMADOL HYDROCHLORIDE
  8. ACETAMINOPHEN ER [Concomitant]
     Active Substance: ACETAMINOPHEN
  9. ARICEPT [Concomitant]
     Active Substance: DONEPEZIL HYDROCHLORIDE
  10. SKELAXIN [Concomitant]
     Active Substance: METAXALONE
  11. VICODIN ES [Concomitant]
     Active Substance: ACETAMINOPHEN\HYDROCODONE BITARTRATE
  12. COLACE [Concomitant]
     Active Substance: DOCUSATE SODIUM
  13. COUMADIN [Concomitant]
     Active Substance: WARFARIN SODIUM
  14. DIGOXIN. [Concomitant]
     Active Substance: DIGOXIN
  15. PRILOSEC [Concomitant]
     Active Substance: OMEPRAZOLE MAGNESIUM
  16. ASPIRIN. [Concomitant]
     Active Substance: ASPIRIN
  17. ZOFRAN [Concomitant]
     Active Substance: ONDANSETRON HYDROCHLORIDE
  18. ATENOLOL. [Concomitant]
     Active Substance: ATENOLOL
  19. XYREM [Suspect]
     Active Substance: SODIUM OXYBATE
     Indication: NARCOLEPSY
     Dosage: 2.25 G, BID
     Route: 048
     Dates: start: 200307, end: 200402
  20. LOPERAMIDE HCL [Concomitant]
     Active Substance: LOPERAMIDE HYDROCHLORIDE
  21. FERROUS SULFATE. [Concomitant]
     Active Substance: FERROUS SULFATE
  22. FUROSEMIDE. [Concomitant]
     Active Substance: FUROSEMIDE
  23. LYRICA [Concomitant]
     Active Substance: PREGABALIN
  24. MORPHINE SULF CR [Concomitant]
  25. NUVIGIL [Concomitant]
     Active Substance: ARMODAFINIL
  26. PROVIGIL [Concomitant]
     Active Substance: MODAFINIL
  27. WARFARIN [Concomitant]
     Active Substance: WARFARIN
  28. MULTIVITAMIN [Concomitant]
     Active Substance: VITAMINS
  29. PREDNISONE. [Concomitant]
     Active Substance: PREDNISONE

REACTIONS (2)
  - Malaise [Not Recovered/Not Resolved]
  - Pain [Not Recovered/Not Resolved]

NARRATIVE: CASE EVENT DATE: 20160609
